FAERS Safety Report 5190196-9 (Version None)
Quarter: 2006Q4

REPORT INFORMATION
  Report Type: 
  Country: None (occurrence: None)
  Receive Date: 20061222
  Receipt Date: 20061214
  Transmission Date: 20070319
  Serious: Yes (Other)
  Sender: FDA-Public Use
  Company Number: PHBS2006SE19409

PATIENT
  Age: 68 Year
  Sex: Female

DRUGS (8)
  1. ZOMETA [Suspect]
     Indication: HYPERCALCAEMIA
     Route: 042
     Dates: start: 20051001, end: 20060301
  2. AREDIA [Suspect]
     Indication: HYPERCALCAEMIA
     Route: 042
     Dates: start: 20010901, end: 20050801
  3. IMPUGAN [Concomitant]
     Route: 048
  4. MINDIAB [Concomitant]
     Route: 048
  5. KALIUM RETARD [Concomitant]
     Route: 048
  6. EMGESAN [Concomitant]
     Route: 048
  7. PREDNISOLONE [Concomitant]
     Route: 048
  8. LANTUS [Concomitant]

REACTIONS (1)
  - OSTEONECROSIS [None]
